FAERS Safety Report 7591466-7 (Version None)
Quarter: 2011Q3

REPORT INFORMATION
  Report Type: 
  Country: None (occurrence: None)
  Receive Date: 20110701
  Receipt Date: 20110701
  Transmission Date: 20111222
  Serious: Yes (Other)
  Sender: FDA-Public Use
  Company Number: None

PATIENT
  Age: 71 Year
  Sex: Female
  Weight: 226.8 kg

DRUGS (1)
  1. ENOXAPARIN [Suspect]
     Indication: PULMONARY EMBOLISM
     Dosage: 220MG Q12H SQ
     Route: 058
     Dates: start: 20110623, end: 20110623

REACTIONS (1)
  - EPISTAXIS [None]
